FAERS Safety Report 23868133 (Version 1)
Quarter: 2024Q2

REPORT INFORMATION
  Report Type: Spontaneous
  Country: IN (occurrence: IN)
  Receive Date: 20240517
  Receipt Date: 20240517
  Transmission Date: 20240716
  Serious: Yes (Other)
  Sender: FDA-Public Use
  Company Number: IN-RDY-LIT/IND/24/0007134

PATIENT
  Age: 70 Year
  Sex: Male

DRUGS (4)
  1. PEMETREXED [Suspect]
     Active Substance: PEMETREXED
     Indication: Non-small cell lung cancer stage IV
     Dosage: 4 CYCLES
  2. PEMETREXED [Suspect]
     Active Substance: PEMETREXED
     Dosage: 2 CYCLES OF PEMETREXED
  3. CARBOPLATIN [Concomitant]
     Active Substance: CARBOPLATIN
     Indication: Non-small cell lung cancer stage IV
     Dosage: 4 CYCLES
  4. GEFITINIB [Concomitant]
     Active Substance: GEFITINIB
     Indication: Non-small cell lung cancer stage IV

REACTIONS (2)
  - Disease progression [Unknown]
  - Treatment failure [Unknown]
